FAERS Safety Report 4805875-X (Version None)
Quarter: 2005Q4

REPORT INFORMATION
  Report Type: 
  Country: None (occurrence: None)
  Receive Date: 20051018
  Receipt Date: 20051005
  Transmission Date: 20060501
  Serious: Yes (Death, Hospitalization, Disabling)
  Sender: FDA-Public Use
  Company Number: USA0507104141

PATIENT
  Age: 87 Year
  Sex: Female

DRUGS (11)
  1. CYMBALTA [Suspect]
     Indication: DEPRESSION
     Dosage: 60 MG
     Dates: start: 20050715, end: 20050719
  2. FENTANYL [Concomitant]
  3. ACETYLSALICYLIC ACID SRT [Concomitant]
  4. LEVOXYL [Concomitant]
  5. NORVASC [Concomitant]
  6. PREVACID [Concomitant]
  7. TUMS (CALCIUM CARBONATE) [Concomitant]
  8. VITAMIN D [Concomitant]
  9. ARICEPT [Concomitant]
  10. NAMENDA [Concomitant]
  11. REMERON [Concomitant]

REACTIONS (4)
  - COMMUNICATION DISORDER [None]
  - DROOLING [None]
  - LISTLESS [None]
  - MENTAL STATUS CHANGES [None]
